FAERS Safety Report 11964918 (Version 1)
Quarter: 2016Q1

REPORT INFORMATION
  Report Type: Spontaneous
  Country: BE (occurrence: BE)
  Receive Date: 20160127
  Receipt Date: 20160127
  Transmission Date: 20160526
  Serious: Yes (Other)
  Sender: FDA-Public Use
  Company Number: BE-009507513-1601BEL007470

PATIENT
  Age: 51 Year
  Sex: Male
  Weight: 70 kg

DRUGS (2)
  1. TEMODAL [Suspect]
     Active Substance: TEMOZOLOMIDE
     Indication: NEUROENDOCRINE CARCINOMA
     Dosage: UNK
     Route: 048
     Dates: start: 201601
  2. TEMODAL [Suspect]
     Active Substance: TEMOZOLOMIDE
     Indication: SMALL CELL LUNG CANCER

REACTIONS (2)
  - Neuroendocrine carcinoma [Unknown]
  - Off label use [Unknown]

NARRATIVE: CASE EVENT DATE: 201601
